FAERS Safety Report 6254887-0 (Version None)
Quarter: 2009Q2

REPORT INFORMATION
  Report Type: 
  Country: None (occurrence: None)
  Receive Date: 20090630
  Receipt Date: 20090615
  Transmission Date: 20091009
  Serious: Yes (Life-Threatening, Hospitalization)
  Sender: FDA-Public Use
  Company Number: GB-DEXPHARM-20090863

PATIENT
  Age: 76 Year
  Sex: Female

DRUGS (2)
  1. CHLORHEXIDINE GLUCONATE [Suspect]
     Dosage: TOPICAL
     Route: 061
     Dates: start: 20090511, end: 20090511
  2. BETAHISTINE [Concomitant]

REACTIONS (2)
  - HYPOTENSION [None]
  - URTICARIA [None]
